FAERS Safety Report 19826882 (Version 1)
Quarter: 2021Q3

REPORT INFORMATION
  Report Type: Spontaneous
  Country: GB (occurrence: GB)
  Receive Date: 20210913
  Receipt Date: 20210913
  Transmission Date: 20211014
  Serious: Yes (Other)
  Sender: FDA-Public Use
  Company Number: GB-MALLINCKRODT PHARMACEUTICALS-T202104103

PATIENT
  Age: 30 Year
  Sex: Male

DRUGS (9)
  1. HALDOL [Suspect]
     Active Substance: HALOPERIDOL
     Indication: PRODUCT USED FOR UNKNOWN INDICATION
     Dosage: GRANULES FOR SYRUP
     Route: 065
     Dates: start: 20201229, end: 20201230
  2. HALDOL [Suspect]
     Active Substance: HALOPERIDOL
     Dosage: INJECTION
     Route: 042
     Dates: start: 20201229, end: 20201230
  3. DOZIC [HALOPERIDOL] [Suspect]
     Active Substance: HALOPERIDOL
     Indication: PRODUCT USED FOR UNKNOWN INDICATION
     Dosage: UNK
     Route: 048
     Dates: start: 20201229, end: 20201230
  4. OFIRMEV [Suspect]
     Active Substance: ACETAMINOPHEN
     Indication: PRODUCT USED FOR UNKNOWN INDICATION
     Dosage: UNK
     Route: 042
     Dates: start: 20201229, end: 20201230
  5. CYCLIZINE HYDROCHLORIDE [Suspect]
     Active Substance: CYCLIZINE HYDROCHLORIDE
     Indication: PRODUCT USED FOR UNKNOWN INDICATION
     Dosage: UNK
     Route: 042
     Dates: start: 20201230, end: 20201230
  6. HALOPERIDOL. [Suspect]
     Active Substance: HALOPERIDOL
     Indication: PRODUCT USED FOR UNKNOWN INDICATION
     Dosage: UNK
     Route: 042
     Dates: start: 20201229, end: 20201230
  7. DOZILE [Suspect]
     Active Substance: DOXYLAMINE SUCCINATE
     Indication: PRODUCT USED FOR UNKNOWN INDICATION
     Dosage: UNK
     Route: 042
     Dates: start: 20201229, end: 20201230
  8. QUETIAPINE FUMARATE. [Suspect]
     Active Substance: QUETIAPINE FUMARATE
     Indication: PRODUCT USED FOR UNKNOWN INDICATION
     Dosage: UNK
     Route: 048
     Dates: start: 20201230, end: 20201230
  9. QUETIAPINE. [Suspect]
     Active Substance: QUETIAPINE
     Indication: PRODUCT USED FOR UNKNOWN INDICATION
     Dosage: UNK
     Route: 048
     Dates: start: 20201230, end: 20201230

REACTIONS (3)
  - Dystonia [Recovered/Resolved]
  - Tongue disorder [Recovered/Resolved]
  - Bruxism [Recovered/Resolved]

NARRATIVE: CASE EVENT DATE: 20201230
